FAERS Safety Report 15221295 (Version 1)
Quarter: 2018Q3

REPORT INFORMATION
  Report Type: Spontaneous
  Country: US (occurrence: US)
  Receive Date: 20180705
  Receipt Date: 20180705
  Transmission Date: 20181010
  Serious: Yes (Disabling)
  Sender: FDA-Public Use
  Company Number: None

PATIENT
  Age: 32 Year
  Sex: Female
  Weight: 122.47 kg

DRUGS (3)
  1. MIRENA [Suspect]
     Active Substance: LEVONORGESTREL
     Dates: end: 20180628
  2. JANUMET [Concomitant]
     Active Substance: METFORMIN HYDROCHLORIDE\SITAGLIPTIN PHOSPHATE
  3. IBUPROPHEN [Concomitant]
     Active Substance: IBUPROFEN

REACTIONS (9)
  - Anxiety [None]
  - Visual impairment [None]
  - Asthenia [None]
  - Feeling abnormal [None]
  - Diabetes mellitus [None]
  - Weight decreased [None]
  - Depression [None]
  - Menorrhagia [None]
  - Emotional disorder [None]
